FAERS Safety Report 17776803 (Version 5)
Quarter: 2020Q4

REPORT INFORMATION
  Report Type: Report from Study
  Country: US (occurrence: US)
  Receive Date: 20200513
  Receipt Date: 20201224
  Transmission Date: 20210113
  Serious: Yes (Other)
  Sender: FDA-Public Use
  Company Number: US-ACADIA PHARMACEUTICALS INC.-ACA-2019-014061

PATIENT
  Sex: Male

DRUGS (6)
  1. GABAPENTIN. [Suspect]
     Active Substance: GABAPENTIN
     Dosage: UNK
     Route: 065
     Dates: start: 2020
  2. NUPLAZID [Suspect]
     Active Substance: PIMAVANSERIN TARTRATE
     Indication: PARKINSON^S DISEASE PSYCHOSIS
     Dosage: 34 MG, QD
     Route: 048
     Dates: start: 20190205, end: 2019
  3. NUPLAZID [Suspect]
     Active Substance: PIMAVANSERIN TARTRATE
     Dosage: 34 MG, QD
     Route: 048
     Dates: start: 20190415
  4. NUPLAZID [Suspect]
     Active Substance: PIMAVANSERIN TARTRATE
     Indication: SLEEP DISORDER
     Dosage: 34 MG, QD
     Route: 048
     Dates: start: 20190214
  5. NUPLAZID [Suspect]
     Active Substance: PIMAVANSERIN TARTRATE
     Dosage: 34 MG, QD
     Route: 048
     Dates: start: 20200214
  6. GABAPENTIN. [Suspect]
     Active Substance: GABAPENTIN
     Indication: PRODUCT USED FOR UNKNOWN INDICATION
     Dosage: UNK
     Route: 065

REACTIONS (12)
  - Back disorder [Unknown]
  - Hallucination [Unknown]
  - Delusion [Recovered/Resolved]
  - Rash [Unknown]
  - Skin ulcer [Unknown]
  - Somnolence [Unknown]
  - Fall [Unknown]
  - Insomnia [Unknown]
  - Hallucination, visual [Unknown]
  - Infected skin ulcer [Recovered/Resolved]
  - Drug ineffective for unapproved indication [Unknown]
  - Hallucination [Unknown]

NARRATIVE: CASE EVENT DATE: 2019
